FAERS Safety Report 5790787-8 (Version None)
Quarter: 2008Q2

REPORT INFORMATION
  Report Type: 
  Country: None (occurrence: None)
  Receive Date: 20080626
  Receipt Date: 20080506
  Transmission Date: 20081010
  Serious: No
  Sender: FDA-Public Use
  Company Number: A0726512A

PATIENT
  Sex: Female

DRUGS (4)
  1. ALLI [Suspect]
  2. DIABETES MEDICATION [Concomitant]
  3. BLOOD PRESSURE MEDICATION [Concomitant]
  4. DIABETES MEDICATION [Concomitant]

REACTIONS (3)
  - ADVERSE EVENT [None]
  - ANOREXIA [None]
  - WEIGHT INCREASED [None]
